FAERS Safety Report 8202049-X (Version None)
Quarter: 2012Q1

REPORT INFORMATION
  Report Type: 
  Country: None (occurrence: None)
  Receive Date: 20120312
  Receipt Date: 20120306
  Transmission Date: 20120608
  Serious: Yes (Hospitalization)
  Sender: FDA-Public Use
  Company Number: FR-MERCK-1203USA01153

PATIENT
  Age: 68 Year
  Sex: Male

DRUGS (9)
  1. VALSARTAN [Concomitant]
     Route: 065
  2. VYTORIN [Suspect]
     Route: 048
     Dates: start: 20120208, end: 20120208
  3. OMEPRAZOLE [Suspect]
     Route: 048
     Dates: start: 20120208, end: 20120208
  4. PANTOPRAZOLE [Concomitant]
     Route: 065
     Dates: end: 20120205
  5. EZETIMIBE [Concomitant]
     Route: 065
     Dates: start: 20120206, end: 20120207
  6. OMEPRAZOLE [Concomitant]
     Route: 065
     Dates: start: 20120206, end: 20120207
  7. METFORMIN HCL [Concomitant]
     Route: 065
  8. SIMVASTATIN [Concomitant]
     Route: 065
     Dates: start: 20120206, end: 20120207
  9. ASPIRIN [Concomitant]
     Route: 065

REACTIONS (4)
  - FACE OEDEMA [None]
  - LOSS OF CONSCIOUSNESS [None]
  - GENERALISED ERYTHEMA [None]
  - MALAISE [None]
